FAERS Safety Report 18128341 (Version 1)
Quarter: 2020Q3

REPORT INFORMATION
  Report Type: Spontaneous
  Country: US (occurrence: US)
  Receive Date: 20200807
  Receipt Date: 20200807
  Transmission Date: 20201103
  Serious: Yes (Hospitalization)
  Sender: FDA-Public Use
  Company Number: None

PATIENT
  Age: 52 Year
  Sex: Female

DRUGS (9)
  1. HUMIRA [Suspect]
     Active Substance: ADALIMUMAB
     Indication: RHEUMATOID ARTHRITIS
     Dosage: ?          OTHER FREQUENCY:EVERY 2 WEEKS;?
     Route: 058
     Dates: start: 20200701
  2. LATANOPROST. [Concomitant]
     Active Substance: LATANOPROST
  3. LAMOTRIGINE. [Concomitant]
     Active Substance: LAMOTRIGINE
  4. TIZANIDINE. [Concomitant]
     Active Substance: TIZANIDINE
  5. GABAPENTIN. [Concomitant]
     Active Substance: GABAPENTIN
  6. TRINTELLIX [Concomitant]
     Active Substance: VORTIOXETINE HYDROBROMIDE
  7. TRIAMCINOLON [Concomitant]
  8. METHOTREXATE. [Concomitant]
     Active Substance: METHOTREXATE
  9. AMLODIPINE [Concomitant]
     Active Substance: AMLODIPINE BESYLATE

REACTIONS (2)
  - Migraine [None]
  - Blood pressure increased [None]

NARRATIVE: CASE EVENT DATE: 20200806
